FAERS Safety Report 4628318-8 (Version None)
Quarter: 2005Q2

REPORT INFORMATION
  Report Type: 
  Country: None (occurrence: None)
  Receive Date: 20050401
  Receipt Date: 20020322
  Transmission Date: 20051028
  Serious: Yes (Death)
  Sender: FDA-Public Use
  Company Number: 5711

PATIENT
  Age: 44 Year
  Sex: Male

DRUGS (3)
  1. CYTARABINE [Suspect]
  2. HYDROCORTISONE [Concomitant]
  3. METHOTREXATE [Concomitant]

REACTIONS (3)
  - MENINGITIS STAPHYLOCOCCAL [None]
  - QUADRIPLEGIA [None]
  - URINARY INCONTINENCE [None]
